FAERS Safety Report 16196340 (Version 1)
Quarter: 2019Q2

REPORT INFORMATION
  Report Type: Spontaneous
  Country: US (occurrence: US)
  Receive Date: 20190415
  Receipt Date: 20190415
  Transmission Date: 20190711
  Serious: No
  Sender: FDA-Public Use
  Company Number: US-LEXICON PHARMACEUTICALS, INC-19-1606-00339

PATIENT
  Sex: Male

DRUGS (5)
  1. TELOTRISTAT ETHYL [Suspect]
     Active Substance: TELOTRISTAT ETHYL
     Indication: CARCINOID TUMOUR
     Route: 048
     Dates: start: 20190306, end: 201903
  2. SANDOSTATIN IR [Concomitant]
  3. LANREOTIDE [Concomitant]
     Active Substance: LANREOTIDE
  4. CREON [Concomitant]
     Active Substance: PANCRELIPASE AMYLASE\PANCRELIPASE LIPASE\PANCRELIPASE PROTEASE
  5. TELOTRISTAT ETHYL [Suspect]
     Active Substance: TELOTRISTAT ETHYL
     Route: 048
     Dates: start: 201903

REACTIONS (2)
  - Abdominal pain [Not Recovered/Not Resolved]
  - Off label use [Recovered/Resolved]
